FAERS Safety Report 19899099 (Version 5)
Quarter: 2021Q4

REPORT INFORMATION
  Report Type: Report from Study
  Country: US (occurrence: US)
  Receive Date: 20210929
  Receipt Date: 20211123
  Transmission Date: 20220303
  Serious: Yes (Hospitalization)
  Sender: FDA-Public Use
  Company Number: US-AMGEN-USACT2020189027

PATIENT
  Age: 67 Year
  Sex: Female
  Weight: 60.5 kg

DRUGS (20)
  1. AMG-510 [Suspect]
     Active Substance: AMG-510
     Indication: K-ras gene mutation
     Dosage: 960 MILLIGRAM
     Route: 048
     Dates: start: 20201112
  2. AMG-510 [Suspect]
     Active Substance: AMG-510
     Indication: Signet-ring cell carcinoma
     Dosage: UNK
     Route: 048
     Dates: start: 20201121
  3. RMC-4630 [Suspect]
     Active Substance: RMC-4630
     Indication: K-ras gene mutation
     Dosage: 140 MILLIGRAM
     Route: 048
     Dates: start: 20201112
  4. RMC-4630 [Suspect]
     Active Substance: RMC-4630
     Indication: Signet-ring cell carcinoma
  5. FENTANYL [Concomitant]
     Active Substance: FENTANYL
     Dosage: 75-100 UNK
     Route: 062
     Dates: start: 20201030, end: 20201215
  6. LEVOTHYROXINE [Concomitant]
     Active Substance: LEVOTHYROXINE
     Dosage: 0.075 MILLIGRAM
     Route: 048
     Dates: start: 20201002, end: 20201215
  7. ZYRTEC [Concomitant]
     Active Substance: CETIRIZINE HYDROCHLORIDE
     Dosage: 10 MILLIGRAM
     Route: 048
     Dates: start: 20201002, end: 20201215
  8. GABAPENTIN [Concomitant]
     Active Substance: GABAPENTIN
     Dosage: 600 MILLIGRAM
     Route: 048
     Dates: start: 20200925, end: 20201215
  9. SENNA LEAF [Concomitant]
     Active Substance: SENNA LEAF
     Dosage: 17.2 MILLIGRAM
     Route: 048
     Dates: start: 20201002, end: 20201215
  10. ONDANSETRON [Concomitant]
     Active Substance: ONDANSETRON
     Dosage: 8 MILLIGRAM
     Route: 048
     Dates: start: 20201002, end: 20201118
  11. NARCAN [Concomitant]
     Active Substance: NALOXONE HYDROCHLORIDE
     Dosage: UNK
     Route: 045
     Dates: start: 20201030, end: 20201201
  12. DULCOLAX (BISACODYL) [Concomitant]
     Active Substance: BISACODYL
     Dosage: 10 MILLIGRAM
     Route: 054
     Dates: start: 20200804, end: 20201215
  13. CLONAZEPAM [Concomitant]
     Active Substance: CLONAZEPAM
     Dosage: 0.5 MILLIGRAM
     Route: 048
     Dates: start: 20201001, end: 20201215
  14. DOCUSATE [Concomitant]
     Active Substance: DOCUSATE
     Dosage: 100 MILLIGRAM
     Route: 048
     Dates: start: 20201002, end: 20201215
  15. TYLENOL [Concomitant]
     Active Substance: ACETAMINOPHEN
     Dosage: 1000 MILLIGRAM
     Route: 048
     Dates: start: 20201001, end: 20201215
  16. ATENOLOL [Concomitant]
     Active Substance: ATENOLOL
     Dosage: 50 MILLIGRAM
     Route: 048
     Dates: start: 20201006, end: 20201215
  17. FLUOXETINE [Concomitant]
     Active Substance: FLUOXETINE HYDROCHLORIDE
     Dosage: 20 MILLIGRAM
     Route: 048
     Dates: start: 20201001, end: 20201215
  18. BACLOFEN [Concomitant]
     Active Substance: BACLOFEN
     Dosage: 10 MILLIGRAM
     Route: 048
     Dates: start: 20201028, end: 20201215
  19. OXYCODONE [Concomitant]
     Active Substance: OXYCODONE
     Dosage: 10 MILLIGRAM
     Route: 048
     Dates: start: 20201028, end: 20201126
  20. LIDOCAINE [Concomitant]
     Active Substance: LIDOCAINE
     Dosage: 1 UNK
     Route: 061
     Dates: start: 20201028, end: 20201215

REACTIONS (2)
  - Muscular weakness [Recovered/Resolved]
  - Pyrexia [Recovered/Resolved]

NARRATIVE: CASE EVENT DATE: 20201117
